FAERS Safety Report 4623134-5 (Version None)
Quarter: 2005Q1

REPORT INFORMATION
  Report Type: 
  Country: None (occurrence: None)
  Receive Date: 20050328
  Receipt Date: 20050328
  Transmission Date: 20050727
  Serious: Yes (Death, Life-Threatening, Hospitalization, Other)
  Sender: FDA-Public Use
  Company Number: None

PATIENT
  Age: 80 Year
  Sex: Male
  Weight: 58.9676 kg

DRUGS (2)
  1. CRESTOR [Suspect]
     Indication: BLOOD CHOLESTEROL INCREASED
     Dosage: 10MG QD
  2. CHOLESTEROL [Concomitant]

REACTIONS (6)
  - ASTHENIA [None]
  - CARDIAC ARREST [None]
  - DIALYSIS [None]
  - DRUG TOXICITY [None]
  - DYSPNOEA [None]
  - RENAL FAILURE ACUTE [None]
